FAERS Safety Report 9146947 (Version 1)
Quarter: 2013Q1

REPORT INFORMATION
  Report Type: Spontaneous
  Country: US (occurrence: None)
  Receive Date: 20130221
  Receipt Date: 20130221
  Transmission Date: 20140127
  Serious: Yes (Death)
  Sender: FDA-Public Use
  Company Number: 2013-00496

PATIENT
  Age: 65 Year
  Sex: Female

DRUGS (3)
  1. MELOXICAM [Suspect]
     Indication: PRODUCT USED FOR UNKNOWN INDICATION
  2. QUETIAPINE [Suspect]
     Indication: PRODUCT USED FOR UNKNOWN INDICATION
  3. ACETAMINOPHEN [Suspect]
     Indication: PRODUCT USED FOR UNKNOWN INDICATION

REACTIONS (1)
  - Completed suicide [None]
